FAERS Safety Report 5272837-0 (Version None)
Quarter: 2007Q1

REPORT INFORMATION
  Report Type: 
  Country: None (occurrence: None)
  Receive Date: 20070322
  Receipt Date: 20070320
  Transmission Date: 20070707
  Serious: Yes (Death, Other)
  Sender: FDA-Public Use
  Company Number: HQWYE525727JAN06

PATIENT
  Sex: Male
  Weight: 111.7 kg

DRUGS (15)
  1. PROGRAF [Suspect]
     Indication: PROPHYLAXIS AGAINST TRANSPLANT REJECTION
     Route: 048
     Dates: start: 20050630, end: 20060101
  2. PROGRAF [Suspect]
     Route: 048
     Dates: start: 20060101, end: 20060624
  3. NORVASC [Concomitant]
     Route: 048
  4. ACTIGALL [Concomitant]
     Route: 048
  5. BACTRIM [Concomitant]
     Route: 048
  6. METOPROLOL TARTRATE [Concomitant]
     Route: 048
  7. ACETYLSALICYLIC ACID SRT [Concomitant]
     Route: 048
  8. DILAUDID [Concomitant]
     Dosage: 10 MG TABLET EVERY 4-6 HOURS PRN
     Route: 048
  9. ULTRAM [Concomitant]
     Dosage: 100 MG EVERY 4-6 HOURS FOR PAIN
     Route: 048
  10. FENTANYL [Concomitant]
     Dosage: 100 MCG/HR PATCH 72 HOUR; CHANGE EVERY 2 DAYS
     Route: 062
  11. COLACE [Concomitant]
     Route: 048
  12. SENNA [Concomitant]
     Dosage: 8.6 MG TABLET; 2-3 TABLETS ONCE DAILY
     Route: 048
  13. INFLUENZA VIRUS VACCINE POLYVALENT [Concomitant]
     Route: 030
     Dates: start: 20051216, end: 20051216
  14. MULTI-VITAMINS [Concomitant]
     Route: 048
  15. PERIDEX [Concomitant]
     Dosage: RINSE MOUTH IN AM AND PM
     Route: 048

REACTIONS (3)
  - ADENOCARCINOMA PANCREAS [None]
  - HEPATIC NEOPLASM MALIGNANT [None]
  - PANCREATIC CARCINOMA METASTATIC [None]
